FAERS Safety Report 25494889 (Version 6)
Quarter: 2025Q4

REPORT INFORMATION
  Report Type: Spontaneous
  Country: US (occurrence: US)
  Receive Date: 20250630
  Receipt Date: 20251017
  Transmission Date: 20260117
  Serious: Yes (Other)
  Sender: PFIZER
  Company Number: US-PFIZER INC-202500130388

PATIENT
  Age: 40 Year
  Sex: Female

DRUGS (2)
  1. TIVDAK [Suspect]
     Active Substance: TISOTUMAB VEDOTIN-TFTV
     Indication: Cervix carcinoma recurrent
     Dosage: 2.0 MG/KG, EVERY 3 WEEKS (FIRST CYCLE)
     Route: 042
     Dates: start: 20250529
  2. TIVDAK [Suspect]
     Active Substance: TISOTUMAB VEDOTIN-TFTV
     Dosage: 1.3 MG/KG, EVERY 3 WEEKS
     Route: 042
     Dates: end: 202508

REACTIONS (3)
  - Rectal haemorrhage [Recovering/Resolving]
  - Urinary bladder haemorrhage [Unknown]
  - Gastrointestinal haemorrhage [Unknown]

NARRATIVE: CASE EVENT DATE: 20250101
